FAERS Safety Report 12878784 (Version 1)
Quarter: 2016Q4

REPORT INFORMATION
  Report Type: Report from Study
  Country: None (occurrence: IT)
  Receive Date: 20161024
  Receipt Date: 20161024
  Transmission Date: 20170207
  Serious: Yes (Death, Hospitalization)
  Sender: FDA-Public Use
  Company Number: IT-ABBVIE-16P-083-1760004-00

PATIENT
  Sex: Male
  Weight: 58 kg

DRUGS (1)
  1. DUODOPA [Suspect]
     Active Substance: CARBIDOPA\LEVODOPA
     Indication: PARKINSON^S DISEASE
     Dosage: MD 8(+3)??CR 3,5??ED 3
     Route: 050
     Dates: start: 20160725, end: 20160921

REACTIONS (2)
  - General physical health deterioration [Fatal]
  - Respiratory failure [Fatal]
